FAERS Safety Report 25142539 (Version 1)
Quarter: 2025Q2

REPORT INFORMATION
  Report Type: Spontaneous
  Country: CA (occurrence: CA)
  Receive Date: 20250331
  Receipt Date: 20250331
  Transmission Date: 20250716
  Serious: Yes (Other)
  Sender: B BRAUN
  Company Number: CA-B.Braun Medical Inc.-2173993

PATIENT
  Age: 27 Year
  Sex: Male

DRUGS (7)
  1. SODIUM CHLORIDE [Suspect]
     Active Substance: SODIUM CHLORIDE
     Indication: Seasonal allergy
  2. STANDARDIZED CAT HAIR [Suspect]
     Active Substance: FELIS CATUS HAIR
  3. PHENOL [Suspect]
     Active Substance: PHENOL
  4. ALLERGENIC EXTRACTS [Suspect]
     Active Substance: ALLERGENIC EXTRACTS
  5. ALLERGENIC EXTRACTS [Suspect]
     Active Substance: ALLERGENIC EXTRACTS
  6. HERBALS [Suspect]
     Active Substance: HERBALS
  7. AGROSTIS GIGANTEA POLLEN\DACTYLIS GLOMERATA POLLEN\PHLEUM PRATENSE POL [Suspect]
     Active Substance: AGROSTIS GIGANTEA POLLEN\DACTYLIS GLOMERATA POLLEN\PHLEUM PRATENSE POLLEN\POA PRATENSIS POLLEN

REACTIONS (7)
  - Dyspnoea [Recovered/Resolved]
  - Product packaging confusion [Recovered/Resolved]
  - Wrong dose [Recovered/Resolved]
  - Throat tightness [Recovered/Resolved]
  - Swelling face [Recovered/Resolved]
  - Sinus congestion [Recovered/Resolved]
  - Flushing [Recovered/Resolved]
